FAERS Safety Report 5222543-3 (Version None)
Quarter: 2007Q1

REPORT INFORMATION
  Report Type: 
  Country: None (occurrence: None)
  Receive Date: 20061201
  Receipt Date: 20060714
  Transmission Date: 20070707
  Serious: No
  Sender: FDA-Public Use
  Company Number: 2006PV017598

PATIENT
  Age: 48 Year
  Sex: Male
  Weight: 119.7496 kg

DRUGS (5)
  1. BYETTA [Suspect]
     Indication: DIABETES MELLITUS NON-INSULIN-DEPENDENT
     Dosage: 5 MCG;BID;SC
     Route: 058
     Dates: start: 20060611
  2. AVANDIA [Concomitant]
  3. GLUCOVANCE [Concomitant]
  4. LANTUS [Concomitant]
  5. LIPITOR [Concomitant]

REACTIONS (1)
  - BLOOD GLUCOSE FLUCTUATION [None]
